FAERS Safety Report 14950572 (Version 1)
Quarter: 2018Q2

REPORT INFORMATION
  Report Type: Report from Study
  Country: US (occurrence: US)
  Receive Date: 20180530
  Receipt Date: 20180530
  Transmission Date: 20180711
  Serious: Yes (Other)
  Sender: FDA-Public Use
  Company Number: US-AMGEN-USASL2018072701

PATIENT
  Sex: Female

DRUGS (1)
  1. ENBREL [Suspect]
     Active Substance: ETANERCEPT
     Indication: RHEUMATOID ARTHRITIS
     Dosage: 50 MG, QWK
     Route: 065

REACTIONS (9)
  - Ankylosing spondylitis [Unknown]
  - Diabetes mellitus [Unknown]
  - Pain [Unknown]
  - Therapeutic response shortened [Unknown]
  - Injection site discolouration [Unknown]
  - Fibromyalgia [Unknown]
  - Injection site pain [Unknown]
  - Skin exfoliation [Unknown]
  - Sunburn [Unknown]
